FAERS Safety Report 6457488-4 (Version None)
Quarter: 2009Q4

REPORT INFORMATION
  Report Type: 
  Country: None (occurrence: None)
  Receive Date: 20091125
  Receipt Date: 20091111
  Transmission Date: 20100525
  Serious: Yes (Other)
  Sender: FDA-Public Use
  Company Number: PHHY2008MX02531

PATIENT
  Age: 97 Year
  Sex: Female

DRUGS (4)
  1. DIOVAN HCT [Suspect]
     Indication: HYPERTENSION
     Dosage: 1 TABLETS (160/25 MG) PER DAY, QD
     Route: 048
     Dates: start: 20070701, end: 20080201
  2. DIOVAN HCT [Suspect]
     Dosage: 2 TABLET (160/25 MG)/DAY, QD
     Route: 048
     Dates: start: 20080201
  3. BIPERIDEN HYDROCHLORIDE TAB [Concomitant]
  4. PENTOXIFYLLINE [Concomitant]

REACTIONS (7)
  - HEAD TITUBATION [None]
  - HEADACHE [None]
  - HYPERTENSION [None]
  - INFARCTION [None]
  - PAIN IN EXTREMITY [None]
  - TREMOR [None]
  - TRISMUS [None]
